FAERS Safety Report 17439411 (Version 1)
Quarter: 2020Q1

REPORT INFORMATION
  Report Type: Spontaneous
  Country: US (occurrence: US)
  Receive Date: 20200219
  Receipt Date: 20200219
  Transmission Date: 20200409
  Serious: Yes (Other)
  Sender: FDA-Public Use
  Company Number: None

PATIENT
  Age: 31 Year
  Sex: Female
  Weight: 149 kg

DRUGS (7)
  1. LISINOPRIL. [Suspect]
     Active Substance: LISINOPRIL
     Indication: HYPERTENSION
     Route: 048
  2. CARBAMAZEPINE ER 400MG BID [Concomitant]
  3. METFORMIN 1000MG BID [Concomitant]
  4. PALIPERIDONE 9MG DAILY [Concomitant]
  5. ATORVASTATIN 10MG DAILY [Concomitant]
     Active Substance: ATORVASTATIN
  6. OMEPRAZOLE 20MG DAILY [Concomitant]
  7. LEVOTHYROXINE 50MCG DAILY [Concomitant]

REACTIONS (2)
  - Hyperkalaemia [None]
  - Respiratory failure [None]

NARRATIVE: CASE EVENT DATE: 20200102
